FAERS Safety Report 15523271 (Version 1)
Quarter: 2018Q4

REPORT INFORMATION
  Report Type: Spontaneous
  Country: US (occurrence: US)
  Receive Date: 20181019
  Receipt Date: 20181019
  Transmission Date: 20190205
  Serious: Yes (Other)
  Sender: FDA-Public Use
  Company Number: None

PATIENT
  Age: 85 Year
  Sex: Female

DRUGS (1)
  1. CRIZOTINIB [Suspect]
     Active Substance: CRIZOTINIB
     Indication: LUNG ADENOCARCINOMA
     Route: 048
     Dates: start: 20180718, end: 20180807

REACTIONS (5)
  - Fatigue [None]
  - Nausea [None]
  - Hyponatraemia [None]
  - Hepatotoxicity [None]
  - Abdominal distension [None]

NARRATIVE: CASE EVENT DATE: 20180807
